APPROVED DRUG PRODUCT: CETIRIZINE HYDROCHLORIDE HIVES RELIEF
Active Ingredient: CETIRIZINE HYDROCHLORIDE
Strength: 10MG
Dosage Form/Route: TABLET, CHEWABLE;ORAL
Application: A077631 | Product #002
Applicant: SUN PHARMACEUTICAL INDUSTRIES INC
Approved: Jan 11, 2008 | RLD: No | RS: No | Type: DISCN